FAERS Safety Report 13383999 (Version 2)
Quarter: 2017Q2

REPORT INFORMATION
  Report Type: Spontaneous
  Country: US (occurrence: US)
  Receive Date: 20170329
  Receipt Date: 20170420
  Transmission Date: 20170830
  Serious: No
  Sender: FDA-Public Use
  Company Number: US-ASTRAZENECA-2017SE29778

PATIENT
  Age: 788 Month
  Sex: Male
  Weight: 142.9 kg

DRUGS (1)
  1. BYDUREON [Suspect]
     Active Substance: EXENATIDE
     Indication: TYPE 2 DIABETES MELLITUS
     Route: 058
     Dates: start: 20170303

REACTIONS (9)
  - Drug administration error [Unknown]
  - Product quality issue [Unknown]
  - Weight decreased [Unknown]
  - Frustration tolerance decreased [Unknown]
  - Circumstance or information capable of leading to medication error [Unknown]
  - Drug ineffective [Unknown]
  - Device malfunction [Unknown]
  - Decreased appetite [Unknown]
  - Device difficult to use [Recovering/Resolving]

NARRATIVE: CASE EVENT DATE: 201703
